FAERS Safety Report 17156324 (Version 1)
Quarter: 2019Q4

REPORT INFORMATION
  Report Type: Report from Study
  Country: UA (occurrence: UA)
  Receive Date: 20191216
  Receipt Date: 20191216
  Transmission Date: 20200122
  Serious: No
  Sender: FDA-Public Use
  Company Number: UA-B.I. PHARMACEUTICALS,INC./RIDGEFIELD-2019-BI-119135

PATIENT
  Age: 70 Year
  Sex: Male

DRUGS (1)
  1. SYNJARDY [Suspect]
     Active Substance: EMPAGLIFLOZIN\METFORMIN HYDROCHLORIDE
     Indication: PRODUCT USED FOR UNKNOWN INDICATION
     Dosage: 1 TABLET 12.5 / 1000 MG 1 TIME PER DAY (IN THE EVENING)
     Route: 048
     Dates: start: 2018

REACTIONS (1)
  - Ketonuria [Recovering/Resolving]

NARRATIVE: CASE EVENT DATE: 2018
